FAERS Safety Report 5707885-7 (Version None)
Quarter: 2008Q2

REPORT INFORMATION
  Report Type: 
  Country: None (occurrence: None)
  Receive Date: 20080414
  Receipt Date: 20080401
  Transmission Date: 20081010
  Serious: Yes (Life-Threatening)
  Sender: FDA-Public Use
  Company Number: OMPQ-NO-0804S-0220

PATIENT
  Age: 75 Year
  Sex: Male

DRUGS (2)
  1. OMNIPAQUE 140 [Suspect]
     Indication: ACUTE MYOCARDIAL INFARCTION
     Dosage: 110 ML, SINGLE DOSE, I.V.
     Route: 042
     Dates: start: 20080401, end: 20080401
  2. OMNIPAQUE 140 [Suspect]

REACTIONS (6)
  - COMA [None]
  - IMMEDIATE POST-INJECTION REACTION [None]
  - JAW DISORDER [None]
  - OPISTHOTONUS [None]
  - TONGUE BITING [None]
  - UNEVALUABLE EVENT [None]
